FAERS Safety Report 7656293-0 (Version None)
Quarter: 2011Q3

REPORT INFORMATION
  Report Type: 
  Country: None (occurrence: None)
  Receive Date: 20110804
  Receipt Date: 20110726
  Transmission Date: 20111222
  Serious: Yes (Other)
  Sender: FDA-Public Use
  Company Number: US-CEPHALON-2010005338

PATIENT
  Sex: Female
  Weight: 63 kg

DRUGS (1)
  1. NUVIGIL [Suspect]
     Route: 048

REACTIONS (2)
  - THROMBOCYTOPENIA [None]
  - MATERNAL EXPOSURE DURING PREGNANCY [None]
